FAERS Safety Report 6995928-2 (Version None)
Quarter: 2010Q3

REPORT INFORMATION
  Report Type: 
  Country: None (occurrence: None)
  Receive Date: 20100918
  Receipt Date: 20081120
  Transmission Date: 20110219
  Serious: No
  Sender: FDA-Public Use
  Company Number: US-WYE-H06475908

PATIENT
  Sex: Female
  Weight: 72.64 kg

DRUGS (5)
  1. PREMPRO [Suspect]
     Indication: HORMONE REPLACEMENT THERAPY
     Route: 048
     Dates: start: 20081006, end: 20081011
  2. PERCOCET [Concomitant]
  3. ALPRAZOLAM [Concomitant]
  4. PRILOSEC [Concomitant]
  5. ZYRTEC [Concomitant]

REACTIONS (4)
  - CONDITION AGGRAVATED [None]
  - DISTURBANCE IN ATTENTION [None]
  - INSOMNIA [None]
  - MIGRAINE [None]
